FAERS Safety Report 8099546-7 (Version None)
Quarter: 2012Q1

REPORT INFORMATION
  Report Type: 
  Country: None (occurrence: None)
  Receive Date: 20120129
  Receipt Date: 20110906
  Transmission Date: 20120608
  Serious: No
  Sender: FDA-Public Use
  Company Number: US-ABBOTT-11P-163-0851855-00

PATIENT
  Age: 36 Year
  Sex: Female

DRUGS (4)
  1. MULTI-VITAMINS [Concomitant]
     Indication: VITAMIN SUPPLEMENTATION
     Dosage: DAILY
  2. HUMIRA [Suspect]
     Indication: CROHN'S DISEASE
     Dates: start: 20110401
  3. CALTRATE [Concomitant]
     Indication: PRODUCT USED FOR UNKNOWN INDICATION
  4. IRON [Concomitant]
     Indication: MINERAL SUPPLEMENTATION
     Dosage: DAILY

REACTIONS (1)
  - INJECTION SITE HAEMORRHAGE [None]
